FAERS Safety Report 10021942 (Version 1)
Quarter: 2014Q1

REPORT INFORMATION
  Report Type: Spontaneous
  Country: US (occurrence: None)
  Receive Date: 20140318
  Receipt Date: 20140318
  Transmission Date: 20141002
  Serious: Yes (Hospitalization)
  Sender: FDA-Public Use
  Company Number: None

PATIENT
  Age: 48 Year
  Sex: Male
  Weight: 87.09 kg

DRUGS (1)
  1. BOTOX [Suspect]
     Indication: MIGRAINE
     Dosage: GIVEN INTO/UNDER THE SKIN
     Dates: start: 20140221, end: 20140221

REACTIONS (23)
  - Asthenia [None]
  - Nausea [None]
  - Dizziness [None]
  - Loss of consciousness [None]
  - Head injury [None]
  - Dehydration [None]
  - Lethargy [None]
  - Gait disturbance [None]
  - Crying [None]
  - Anger [None]
  - Homicidal ideation [None]
  - Dry mouth [None]
  - Musculoskeletal stiffness [None]
  - Migraine [None]
  - Neck pain [None]
  - Spinal pain [None]
  - Motion sickness [None]
  - Dyspnoea [None]
  - Hot flush [None]
  - Eyelid oedema [None]
  - Confusional state [None]
  - Amnesia [None]
  - Feeling abnormal [None]
